FAERS Safety Report 8998948 (Version 2)
Quarter: 2013Q1

REPORT INFORMATION
  Report Type: Spontaneous
  Country: US (occurrence: US)
  Receive Date: 20130103
  Receipt Date: 20130118
  Transmission Date: 20140127
  Serious: No
  Sender: FDA-Public Use
  Company Number: US-PFIZER INC-2012328304

PATIENT
  Sex: Male

DRUGS (8)
  1. SUTENT [Suspect]
     Dosage: UNK
     Route: 048
     Dates: start: 20121029
  2. SAW PALMETTO [Concomitant]
     Dosage: UNK
  3. FISH OIL [Concomitant]
     Dosage: UNK
  4. METOPROLOL [Concomitant]
     Dosage: UNK
  5. IMODIUM [Concomitant]
     Dosage: UNK
  6. ASPIRIN [Concomitant]
     Dosage: 81 MG, UNK
  7. VITAMIN D [Concomitant]
     Dosage: UNK
  8. VITAMIN C [Concomitant]
     Dosage: UNK

REACTIONS (8)
  - Palmar-plantar erythrodysaesthesia syndrome [Unknown]
  - Fatigue [Unknown]
  - Somnolence [Unknown]
  - Yellow skin [Unknown]
  - Dysgeusia [Unknown]
  - Glossodynia [Unknown]
  - Diarrhoea [Unknown]
  - Flatulence [Unknown]
